FAERS Safety Report 10069437 (Version 3)
Quarter: 2014Q2

REPORT INFORMATION
  Report Type: Report from Study
  Country: US (occurrence: US)
  Receive Date: 20140410
  Receipt Date: 20140501
  Transmission Date: 20141212
  Serious: Yes (Life-Threatening, Hospitalization)
  Sender: FDA-Public Use
  Company Number: US-ROCHE-1377242

PATIENT
  Sex: Female
  Weight: 65.83 kg

DRUGS (1)
  1. OMALIZUMAB [Suspect]
     Indication: ASTHMA
     Dosage: LAST DOSE PRIOR TO SAE WAS ON 19/FEB/2014
     Route: 058
     Dates: start: 20131112

REACTIONS (1)
  - Pulmonary embolism [Recovered/Resolved]
